FAERS Safety Report 4533756-8 (Version None)
Quarter: 2004Q4

REPORT INFORMATION
  Report Type: 
  Country: None (occurrence: None)
  Receive Date: 20041206
  Receipt Date: 20041019
  Transmission Date: 20050328
  Serious: No
  Sender: FDA-Public Use
  Company Number: USA041081682

PATIENT
  Age: 54 Year
  Sex: Female

DRUGS (5)
  1. CYMBALTA [Suspect]
     Indication: DEPRESSION
     Dosage: 60 MG DAY
     Dates: start: 20041004
  2. WELLBUTRIN SR [Concomitant]
  3. LAMICTAL [Concomitant]
  4. HORMONE REPLACEMENT THERAPY [Concomitant]
  5. INDOMETHACIN [Concomitant]

REACTIONS (6)
  - EAR PAIN [None]
  - HOT FLUSH [None]
  - HYPERHIDROSIS [None]
  - HYPOACUSIS [None]
  - MUSCLE TWITCHING [None]
  - SENSATION OF BLOCK IN EAR [None]
